FAERS Safety Report 12697065 (Version 1)
Quarter: 2016Q3

REPORT INFORMATION
  Report Type: Spontaneous
  Country: US (occurrence: None)
  Receive Date: 20160829
  Receipt Date: 20160829
  Transmission Date: 20161109
  Serious: No
  Sender: FDA-Public Use
  Company Number: None

PATIENT
  Age: 45 Year
  Sex: Female
  Weight: 66.23 kg

DRUGS (1)
  1. LEVOFLOXACIN 500MG [Suspect]
     Active Substance: LEVOFLOXACIN
     Indication: PNEUMONIA
     Route: 048
     Dates: end: 20160815

REACTIONS (6)
  - Insomnia [None]
  - Myalgia [None]
  - Formication [None]
  - Feeling jittery [None]
  - Mental impairment [None]
  - Fatigue [None]

NARRATIVE: CASE EVENT DATE: 20160815
